FAERS Safety Report 21301406 (Version 5)
Quarter: 2023Q1

REPORT INFORMATION
  Report Type: Report from Study
  Country: BE (occurrence: BE)
  Receive Date: 20220907
  Receipt Date: 20230203
  Transmission Date: 20230418
  Serious: Yes (Disabling, Other)
  Sender: FDA-Public Use
  Company Number: BE-NOVARTISPH-NVSC2022BE197644

PATIENT
  Age: 82 Year
  Sex: Female
  Weight: 57 kg

DRUGS (5)
  1. CAPMATINIB [Suspect]
     Active Substance: CAPMATINIB
     Indication: Non-small cell lung cancer
     Dosage: 800 MG, QD
     Route: 048
     Dates: start: 20220720, end: 20220822
  2. CAPMATINIB [Suspect]
     Active Substance: CAPMATINIB
     Dosage: 600 MG, QD
     Route: 065
     Dates: start: 20220831, end: 20220902
  3. DURVALUMAB [Concomitant]
     Active Substance: DURVALUMAB
     Indication: Non-small cell lung cancer
     Dosage: UNK (STARTED FROM 27 APR)
     Route: 065
     Dates: end: 20220525
  4. AMOXICILLIN\CLAVULANATE POTASSIUM [Concomitant]
     Active Substance: AMOXICILLIN\CLAVULANATE POTASSIUM
     Indication: Pneumonia
     Dosage: UNK (GIVEN BETWEEN 16 AND 19 AUG FOR PNEUMONIA)
     Route: 065
     Dates: end: 20220819
  5. CEFUROXIME [Concomitant]
     Active Substance: CEFUROXIME
     Indication: Pneumonia
     Dosage: UNK
     Route: 065
     Dates: start: 20220819

REACTIONS (3)
  - Hepatitis [Recovered/Resolved with Sequelae]
  - Hepatotoxicity [Unknown]
  - Cholestasis [Unknown]

NARRATIVE: CASE EVENT DATE: 20220816
